FAERS Safety Report 24943567 (Version 2)
Quarter: 2025Q2

REPORT INFORMATION
  Report Type: Spontaneous
  Country: US (occurrence: US)
  Receive Date: 20250207
  Receipt Date: 20250402
  Transmission Date: 20250717
  Serious: Yes (Other)
  Sender: PFIZER
  Company Number: US-PFIZER INC-202400005841

PATIENT
  Age: 69 Year
  Sex: Female
  Weight: 68.04 kg

DRUGS (3)
  1. PREMARIN [Suspect]
     Active Substance: ESTROGENS, CONJUGATED
     Indication: Vulvovaginal dryness
     Dosage: TWICE A WEEK
     Route: 067
     Dates: start: 2007
  2. PREMARIN [Suspect]
     Active Substance: ESTROGENS, CONJUGATED
     Route: 067
  3. PREMARIN [Suspect]
     Active Substance: ESTROGENS, CONJUGATED
     Dosage: INTO THE VAGINA DAILY, 0.625 MG/G
     Route: 067

REACTIONS (4)
  - Arthropathy [Unknown]
  - Blood pressure increased [Unknown]
  - Product prescribing error [Unknown]
  - Off label use [Unknown]

NARRATIVE: CASE EVENT DATE: 20070101
